FAERS Safety Report 6536791-3 (Version None)
Quarter: 2010Q1

REPORT INFORMATION
  Report Type: 
  Country: None (occurrence: None)
  Receive Date: 20100113
  Receipt Date: 20100105
  Transmission Date: 20100710
  Serious: Yes (Other)
  Sender: FDA-Public Use
  Company Number: JP-PFIZER INC-2009303923

PATIENT
  Age: 77 Year
  Sex: Female
  Weight: 35 kg

DRUGS (7)
  1. VIAGRA [Suspect]
     Dosage: UNK
     Dates: start: 20070308, end: 20080416
  2. PROCYLIN [Concomitant]
     Dosage: UNK
     Route: 048
     Dates: start: 20060515
  3. ALDACTONE [Concomitant]
     Dosage: UNK
     Route: 048
     Dates: start: 20060721
  4. WARFARIN POTASSIUM [Concomitant]
     Dosage: UNK
     Route: 048
     Dates: start: 20061226
  5. BOSENTAN [Concomitant]
     Indication: PULMONARY EMBOLISM
     Route: 048
     Dates: start: 20070201
  6. ASPIRIN [Concomitant]
     Dosage: UNK
     Route: 048
     Dates: start: 20070201
  7. LIPITOR [Concomitant]
     Dosage: UNK
     Route: 048
     Dates: start: 20070201

REACTIONS (2)
  - GASTROINTESTINAL CARCINOMA [None]
  - LARGE INTESTINAL HAEMORRHAGE [None]
